FAERS Safety Report 7724944-8 (Version None)
Quarter: 2011Q3

REPORT INFORMATION
  Report Type: 
  Country: None (occurrence: None)
  Receive Date: 20110901
  Receipt Date: 20110830
  Transmission Date: 20111222
  Serious: Yes (Other)
  Sender: FDA-Public Use
  Company Number: US-PFIZER INC-2011086249

PATIENT
  Sex: Female
  Weight: 79 kg

DRUGS (8)
  1. TOPAMAX [Concomitant]
     Indication: BIPOLAR DISORDER
     Dosage: 400 MG, DAILY
     Route: 048
  2. AMBIEN [Concomitant]
     Indication: BIPOLAR DISORDER
     Dosage: 20 MG, DAILY AT BEDTIME
     Route: 048
  3. KLONOPIN [Concomitant]
     Indication: BIPOLAR DISORDER
     Dosage: 1 MG, 4X/DAY
     Route: 048
  4. TOPAMAX [Concomitant]
     Indication: BORDERLINE PERSONALITY DISORDER
  5. GEODON [Suspect]
     Indication: BORDERLINE PERSONALITY DISORDER
  6. KLONOPIN [Concomitant]
     Indication: BORDERLINE PERSONALITY DISORDER
  7. AMBIEN [Concomitant]
     Indication: BORDERLINE PERSONALITY DISORDER
  8. GEODON [Suspect]
     Indication: BIPOLAR DISORDER
     Dosage: 160 MG, UNK
     Route: 048
     Dates: start: 20110101

REACTIONS (5)
  - GOITRE [None]
  - DEPRESSION [None]
  - PHARYNGEAL OEDEMA [None]
  - LARYNGITIS [None]
  - MALAISE [None]
